FAERS Safety Report 9970253 (Version 1)
Quarter: 2014Q1

REPORT INFORMATION
  Report Type: Spontaneous
  Country: FR (occurrence: FR)
  Receive Date: 20140306
  Receipt Date: 20140306
  Transmission Date: 20141002
  Serious: Yes (Hospitalization)
  Sender: FDA-Public Use
  Company Number: PHHY2014FR027498

PATIENT
  Age: 22 Year
  Sex: Male

DRUGS (2)
  1. GILENYA [Suspect]
     Indication: MULTIPLE SCLEROSIS
     Dosage: 0.5 MG, QD
     Route: 048
     Dates: start: 201305
  2. ARIXTRA [Concomitant]
     Indication: PROPHYLAXIS

REACTIONS (2)
  - Staphylococcal sepsis [Recovered/Resolved]
  - Lymphopenia [Recovered/Resolved]
